FAERS Safety Report 6330304-7 (Version None)
Quarter: 2009Q3

REPORT INFORMATION
  Report Type: 
  Country: None (occurrence: None)
  Receive Date: 20090827
  Receipt Date: 20090715
  Transmission Date: 20100115
  Serious: No
  Sender: FDA-Public Use
  Company Number: US-KINGPHARMUSA00001-K200900861

PATIENT
  Sex: Female
  Weight: 87.075 kg

DRUGS (25)
  1. FLECTOR [Suspect]
     Indication: INFLAMMATION
     Dosage: 1 PATCH
     Route: 061
     Dates: start: 20070716, end: 20070716
  2. CARVEDILOL [Concomitant]
     Dosage: 25 MG, BID
  3. CARBAMAZEPINE [Concomitant]
     Indication: EPILEPSY
     Dosage: 200 MG, BID
  4. ENALAPRIL MALEATE [Concomitant]
     Indication: HYPERTENSION
     Dosage: 20 MG, BID
  5. AMLODIPINE [Concomitant]
     Indication: HYPERTENSION
     Dosage: 10 MG, UNK
  6. SIMVASTATIN [Concomitant]
     Indication: BLOOD CHOLESTEROL INCREASED
     Dosage: 40 MG, QD
  7. CLOPIDOGREL [Concomitant]
     Indication: ANTICOAGULANT THERAPY
     Dosage: 75 MG, QD
  8. PANTOPRAZOLE SODIUM [Concomitant]
     Indication: REFLUX OESOPHAGITIS
     Dosage: 40 MG, QD
  9. OMEPRAZOLE [Concomitant]
     Indication: REFLUX OESOPHAGITIS
     Dosage: 40 MG, BID
  10. ASPIRIN [Concomitant]
     Dosage: 325 MG, QD
     Route: 048
  11. FISH OIL [Concomitant]
     Indication: BLOOD CHOLESTEROL INCREASED
     Dosage: 1000 MG, TID
  12. FUROSEMIDE [Concomitant]
     Indication: JOINT EFFUSION
     Dosage: 20 MG, QD
     Route: 048
  13. POTASSIUM CHLORIDE [Concomitant]
     Dosage: 20 MEQ, UNK
  14. MORPHINE SULFATE [Concomitant]
     Indication: BACK PAIN
     Dosage: 45 MG, TID
  15. INDOMETHACIN [Concomitant]
     Indication: INFLAMMATION
     Dosage: 50 MG, TID
  16. BACLOFEN [Concomitant]
     Dosage: 10 MG, BID
  17. DIAZEPAM [Concomitant]
     Dosage: 10 MG, TID
  18. GABAPENTIN [Concomitant]
     Indication: NEUROPATHY PERIPHERAL
     Dosage: 600 MG, TID
  19. GABAPENTIN [Concomitant]
     Indication: NERVE INJURY
  20. LIDOCAINE [Concomitant]
     Indication: BACK PAIN
     Dosage: UNK
  21. LIDOCAINE [Concomitant]
     Indication: ARTHRALGIA
  22. PERCOCET [Concomitant]
     Indication: BREAKTHROUGH PAIN
     Dosage: 10/325
  23. MULTI-VITAMINS [Concomitant]
     Dosage: UNK
  24. FIBER [Concomitant]
     Indication: CONSTIPATION
     Dosage: UNK
  25. ALUMINUM HYDROXIDE GEL [Concomitant]

REACTIONS (1)
  - ANGINA PECTORIS [None]
